FAERS Safety Report 25703036 (Version 2)
Quarter: 2025Q4

REPORT INFORMATION
  Report Type: Report from Study
  Country: JP (occurrence: JP)
  Receive Date: 20250819
  Receipt Date: 20251006
  Transmission Date: 20260118
  Serious: Yes (Death)
  Sender: ABBVIE
  Company Number: JP-ABBVIE-6418887

PATIENT
  Age: 87 Year
  Sex: Male

DRUGS (4)
  1. SILODOSIN [Suspect]
     Active Substance: SILODOSIN
     Indication: Product used for unknown indication
     Route: 048
  2. TAVALISSE [Suspect]
     Active Substance: FOSTAMATINIB
     Indication: Immune thrombocytopenia
     Dosage: 200 MG
     Route: 048
     Dates: start: 20240514, end: 20240701
  3. METHYLPREDNISOLONE [Concomitant]
     Active Substance: METHYLPREDNISOLONE
     Indication: Product used for unknown indication
     Route: 042
     Dates: start: 20240530, end: 20240602
  4. ROMIPLOSTIM [Concomitant]
     Active Substance: ROMIPLOSTIM
     Indication: Product used for unknown indication
     Route: 058
     Dates: start: 20240530

REACTIONS (4)
  - Liver disorder [Fatal]
  - Bladder cancer [Fatal]
  - Diarrhoea [Fatal]
  - Anaemia [Fatal]

NARRATIVE: CASE EVENT DATE: 20240419
